FAERS Safety Report 4619112-2 (Version None)
Quarter: 2005Q1

REPORT INFORMATION
  Report Type: 
  Country: None (occurrence: None)
  Receive Date: 20050317
  Receipt Date: 20050317
  Transmission Date: 20050727
  Serious: No
  Sender: FDA-Public Use
  Company Number: None

PATIENT
  Age: 59 Year
  Sex: Female
  Weight: 80.7403 kg

DRUGS (1)
  1. PROVIGIL [Suspect]
     Indication: NARCOLEPSY
     Dosage: 100MG    1X    ORAL
     Route: 048
     Dates: start: 20030101, end: 20050316

REACTIONS (1)
  - RETINAL TEAR [None]
